FAERS Safety Report 23448298 (Version 1)
Quarter: 2024Q1

REPORT INFORMATION
  Report Type: Spontaneous
  Country: GB (occurrence: GB)
  Receive Date: 20240126
  Receipt Date: 20240126
  Transmission Date: 20240409
  Serious: Yes (Death, Hospitalization, Other)
  Sender: FDA-Public Use
  Company Number: GB-CELLTRION INC.-2022GB022269

PATIENT

DRUGS (254)
  1. CHLORPROMAZINE [Suspect]
     Active Substance: CHLORPROMAZINE
     Indication: Schizophrenia
     Dosage: 75 MILLIGRAM, ADDITIONAL INFORMATION ON DRUG (FREE TEXT): CLOZARIL ADDITIONAL INFO: OFF LABEL USE
  2. CHLORPROMAZINE [Suspect]
     Active Substance: CHLORPROMAZINE
     Dosage: UNK MG
  3. OLANZAPINE [Suspect]
     Active Substance: OLANZAPINE
     Indication: Product used for unknown indication
     Dosage: 10 MG/10 MILLIGRAM
     Route: 065
  4. OLANZAPINE [Suspect]
     Active Substance: OLANZAPINE
     Dosage: 15 MG, UNKNOWN
     Dates: start: 20040217
  5. OLANZAPINE [Suspect]
     Active Substance: OLANZAPINE
     Dosage: 2.5 MG, UNKNOWN
     Dates: start: 20080823
  6. OLANZAPINE [Suspect]
     Active Substance: OLANZAPINE
     Dosage: 15 MILLIGRAM (ADDITIONAL INFORMATION ON DRUG (FREE TEXT): CLOZARIL ADDITIONAL INFO: OFF LABEL USE.)
     Route: 048
     Dates: start: 20060704
  7. OLANZAPINE [Suspect]
     Active Substance: OLANZAPINE
     Dosage: 1 MG, UNKNOWN
     Route: 048
  8. OLANZAPINE [Suspect]
     Active Substance: OLANZAPINE
     Dosage: UNK
  9. OLANZAPINE [Suspect]
     Active Substance: OLANZAPINE
     Dosage: 2.5 MILLIGRAM
     Route: 065
  10. ZUCLOPENTHIXOL [Suspect]
     Active Substance: ZUCLOPENTHIXOL
     Dosage: UNK
     Route: 030
  11. ZUCLOPENTHIXOL [Suspect]
     Active Substance: ZUCLOPENTHIXOL
     Dosage: 18-OCT-2009 400 MG, BIW
     Dates: start: 20091018
  12. ZUCLOPENTHIXOL [Suspect]
     Active Substance: ZUCLOPENTHIXOL
     Dosage: 01-SEP-2004 400 MILLIGRAM
     Route: 030
     Dates: start: 20040901
  13. ZUCLOPENTHIXOL [Suspect]
     Active Substance: ZUCLOPENTHIXOL
     Dosage: 400 MG
     Route: 065
  14. ZUCLOPENTHIXOL [Suspect]
     Active Substance: ZUCLOPENTHIXOL
     Dosage: 800 MILLIGRAM, QW (400 MG, 2/W)/04-FEB-2003
     Dates: start: 20040217
  15. ZUCLOPENTHIXOL [Suspect]
     Active Substance: ZUCLOPENTHIXOL
     Dosage: 400 MILLIGRAM, QWK
     Route: 030
     Dates: start: 20030204, end: 20040217
  16. ZUCLOPENTHIXOL [Suspect]
     Active Substance: ZUCLOPENTHIXOL
     Dosage: 300 MG, QW (300 MILLIGRAM I.M WEEKLY), (ADDITIONAL INFORMATION ON DRUG (FREE TEXT): CLOZARIL ADDITIO
     Route: 030
     Dates: start: 20091009
  17. ZUCLOPENTHIXOL [Suspect]
     Active Substance: ZUCLOPENTHIXOL
     Dosage: 400 MILLIGRAM
     Route: 030
     Dates: start: 20040601, end: 20041018
  18. ZUCLOPENTHIXOL [Suspect]
     Active Substance: ZUCLOPENTHIXOL
     Dosage: 300 MILLIGRAM, QWK
     Route: 030
  19. ZUCLOPENTHIXOL [Suspect]
     Active Substance: ZUCLOPENTHIXOL
     Dosage: 400 MG, QW2
     Route: 065
     Dates: start: 20091018
  20. ZUCLOPENTHIXOL [Suspect]
     Active Substance: ZUCLOPENTHIXOL
     Dosage: 18-OCT-2004 400 MG, BIW
     Dates: start: 20041018
  21. ZUCLOPENTHIXOL [Suspect]
     Active Substance: ZUCLOPENTHIXOL
     Dosage: 400 MG, 1/WEEK (DOSE TEXT: 400 MG, QW; CUMULATIVE DOSE TO FIRST REACTION: 244285.72 MG )
     Route: 065
     Dates: start: 20040217, end: 20040601
  22. ZUCLOPENTHIXOL [Suspect]
     Active Substance: ZUCLOPENTHIXOL
     Dosage: 09-OCT-2009 300 MG, QW
     Dates: start: 20091009
  23. ZUCLOPENTHIXOL [Suspect]
     Active Substance: ZUCLOPENTHIXOL
     Dosage: UNK
  24. ZUCLOPENTHIXOL [Suspect]
     Active Substance: ZUCLOPENTHIXOL
     Dosage: 18-OCT-2009 400 MG, Q2WK (CUMULATIVE DOSE TO FIRST REACTION: 63001.19 MG)
     Route: 030
     Dates: start: 20091018
  25. ZUCLOPENTHIXOL [Suspect]
     Active Substance: ZUCLOPENTHIXOL
     Dosage: 400 MG, QW2
     Route: 065
     Dates: start: 20030204, end: 20040217
  26. ZUCLOPENTHIXOL [Suspect]
     Active Substance: ZUCLOPENTHIXOL
     Dosage: 18-OCT-2009 300 MG, QW
     Dates: start: 20091018
  27. ZUCLOPENTHIXOL [Suspect]
     Active Substance: ZUCLOPENTHIXOL
     Dosage: 300 MILLIGRAM, QWK
     Route: 030
     Dates: start: 20091018
  28. ZUCLOPENTHIXOL [Suspect]
     Active Substance: ZUCLOPENTHIXOL
     Dosage: 800 MG, QW, (04 FEB 2003); 17-FEB-2004 00:00
     Route: 065
  29. ZUCLOPENTHIXOL [Suspect]
     Active Substance: ZUCLOPENTHIXOL
     Dosage: 400 MG, OTHER (BIWEEKLY)
     Dates: start: 20041018, end: 20041018
  30. ZUCLOPENTHIXOL [Suspect]
     Active Substance: ZUCLOPENTHIXOL
     Dosage: 400 MG, CYCLIC (400 MG, BIWEEKLY)/04-FEB-2003
     Route: 030
     Dates: start: 20040217
  31. ZUCLOPENTHIXOL [Suspect]
     Active Substance: ZUCLOPENTHIXOL
     Dosage: 18-OCT-2004 800 MILLIGRAM, QWK
     Route: 030
     Dates: start: 20041018, end: 20041018
  32. ZUCLOPENTHIXOL [Suspect]
     Active Substance: ZUCLOPENTHIXOL
     Dosage: 800 MILLIGRAM, QWK
     Route: 030
     Dates: start: 20040601, end: 20041018
  33. ZUCLOPENTHIXOL [Suspect]
     Active Substance: ZUCLOPENTHIXOL
     Dosage: 400 MILLIGRAM, QWK
     Route: 065
     Dates: start: 20040601
  34. ZUCLOPENTHIXOL [Suspect]
     Active Substance: ZUCLOPENTHIXOL
     Dosage: 04-MAR-2003 400 MG, 1/WEEK
     Dates: start: 20030304, end: 20040217
  35. ZUCLOPENTHIXOL [Suspect]
     Active Substance: ZUCLOPENTHIXOL
     Dosage: 01-JUN-2004 800 MILLIGRAM, QWK,608804.75 MG
     Route: 030
     Dates: start: 20040601, end: 20041018
  36. ZUCLOPENTHIXOL [Suspect]
     Active Substance: ZUCLOPENTHIXOL
     Dosage: 400 MG 2/WEEK (DOSE TEXT: 400 MG, BIW)
     Route: 065
     Dates: end: 20041018
  37. ZUCLOPENTHIXOL [Suspect]
     Active Substance: ZUCLOPENTHIXOL
     Dosage: 18-OCT-2019  400 MG, 1/WEEK
     Dates: start: 20191018
  38. ZUCLOPENTHIXOL [Suspect]
     Active Substance: ZUCLOPENTHIXOL
     Dosage: 400 MG, CYCLIC (400 MG, BIWEEKLY)/01-JUN-2004
     Dates: start: 20041018
  39. ZUCLOPENTHIXOL [Suspect]
     Active Substance: ZUCLOPENTHIXOL
     Dosage: 400 MG
  40. ZUCLOPENTHIXOL [Suspect]
     Active Substance: ZUCLOPENTHIXOL
     Dosage: 300 MG, QW
  41. ZUCLOPENTHIXOL [Suspect]
     Active Substance: ZUCLOPENTHIXOL
     Dosage: 400 MILLIGRAM, QW
     Route: 065
     Dates: start: 20030217, end: 20040601
  42. ZUCLOPENTHIXOL [Suspect]
     Active Substance: ZUCLOPENTHIXOL
     Dosage: 01-JUN-2004 400 MG, 1/WEEK
     Dates: start: 20040601
  43. ZUCLOPENTHIXOL [Suspect]
     Active Substance: ZUCLOPENTHIXOL
     Dosage: 17-FEB-2004 400 MG
     Dates: start: 20040217, end: 20040601
  44. ZUCLOPENTHIXOL [Suspect]
     Active Substance: ZUCLOPENTHIXOL
     Dosage: 400 MG, 1/WEEK (DOSE TEXT: 400 MG, QW)
     Route: 065
     Dates: end: 20040601
  45. ZUCLOPENTHIXOL [Suspect]
     Active Substance: ZUCLOPENTHIXOL
     Dosage: 01-JUN-2004 400 MG, BIW
     Dates: start: 20040601, end: 20041018
  46. ZUCLOPENTHIXOL [Suspect]
     Active Substance: ZUCLOPENTHIXOL
     Dosage: 800 MILLIGRAM, QW (400 MG, 2/W)/01-JUN-2004
     Dates: start: 20041018
  47. CLOZARIL [Suspect]
     Active Substance: CLOZAPINE
     Indication: Schizophrenia
     Dosage: 1 DOSAGE FORM, QD (PM); ;
  48. CLOZARIL [Suspect]
     Active Substance: CLOZAPINE
     Dosage: 400 MG, QD
     Dates: start: 20191223, end: 20191223
  49. CLOZARIL [Suspect]
     Active Substance: CLOZAPINE
     Dosage: 245 MG, QD, (ADDITIONAL INFORMATION ON DRUG (FREE TEXT): CLOZARIL ADDITIONAL INFO: OFF LABEL USE; CU
     Route: 048
     Dates: start: 20190823, end: 20190823
  50. CLOZARIL [Suspect]
     Active Substance: CLOZAPINE
     Dosage: 800 MILLIGRAM, BID
     Route: 048
  51. CLOZARIL [Suspect]
     Active Substance: CLOZAPINE
     Dosage: 6000 MG
     Dates: start: 20200521
  52. CLOZARIL [Suspect]
     Active Substance: CLOZAPINE
     Dosage: 275 MG, QD, PM
     Route: 065
  53. CLOZARIL [Suspect]
     Active Substance: CLOZAPINE
     Dosage: 400 MILLIGRAM, QD (400 MG, DAILY)/23-DEC-2019; 23-DEC-2019 00:00
     Route: 048
     Dates: start: 20191223, end: 20191223
  54. CLOZARIL [Suspect]
     Active Substance: CLOZAPINE
     Dosage: UNK, (ADDITIONAL INFORMATION ON DRUG (FREE TEXT): CLOZARIL ADDITIONAL INFO: OFF LABEL USE; CUMULATIV
     Route: 048
     Dates: start: 20191209, end: 20191223
  55. CLOZARIL [Suspect]
     Active Substance: CLOZAPINE
     Dosage: 200 MILLIGRAM, ONCE A DAY, 200 MILLIGRAM, BID OFF LABEL USE TABLE (UNCOATED ORAL)
     Route: 048
  56. CLOZARIL [Suspect]
     Active Substance: CLOZAPINE
     Dosage: 400 MILLIGRAM, DAILY, TABLET (UNCOATED, ORAL)
     Route: 048
     Dates: start: 2011
  57. CLOZARIL [Suspect]
     Active Substance: CLOZAPINE
     Dosage: 400 MG, QD OFF LABEL USE
  58. CLOZARIL [Suspect]
     Active Substance: CLOZAPINE
     Dosage: 1 DOSAGE FORM, QD
     Dates: start: 2011
  59. CLOZARIL [Suspect]
     Active Substance: CLOZAPINE
     Dosage: 275 MG, QD (PM)
  60. CLOZARIL [Suspect]
     Active Substance: CLOZAPINE
     Dosage: 200 MILLIGRAM, TWO TIMES A DAY TABLET (UNCOATED, ORAL)
     Route: 048
     Dates: start: 20191209, end: 20191223
  61. CLOZARIL [Suspect]
     Active Substance: CLOZAPINE
     Dosage: 800 MG, QD
  62. CLOZARIL [Suspect]
     Active Substance: CLOZAPINE
     Dosage: 275 MG, DAILY (PM)
  63. CLOZARIL [Suspect]
     Active Substance: CLOZAPINE
     Dosage: UNK UNK, UNKNOWN
     Dates: start: 20201207
  64. CLOZARIL [Suspect]
     Active Substance: CLOZAPINE
     Dosage: 50 MG, QD, (MIDDAY)
     Route: 065
     Dates: start: 20200521
  65. CLOZARIL [Suspect]
     Active Substance: CLOZAPINE
     Dosage: 100 MG, QD
     Route: 048
     Dates: start: 20191223, end: 20191223
  66. CLOZARIL [Suspect]
     Active Substance: CLOZAPINE
     Dosage: 50 MG, QD, (ADDITIONAL INFORMATION ON DRUG (FREE TEXT): CLOZARIL ADDITIONAL INFO: OFF LABEL USE; CUM
     Route: 048
     Dates: start: 20191209, end: 20191223
  67. CLOZARIL [Suspect]
     Active Substance: CLOZAPINE
     Dosage: 245 MILLIGRAM, ONCE A DAY
     Route: 048
     Dates: start: 2011
  68. CLOZARIL [Suspect]
     Active Substance: CLOZAPINE
     Dosage: 400 MILLIGRAM, BID, (ADDITIONAL INFORMATION ON DRUG (FREE TEXT): CLOZARIL ADDITIONAL INFO: OFF LABEL
     Route: 048
     Dates: start: 20200207
  69. CLOZARIL [Suspect]
     Active Substance: CLOZAPINE
     Dosage: 1 DOSAGE FORM, AM/ START DATE: 2011
  70. CLOZARIL [Suspect]
     Active Substance: CLOZAPINE
     Dosage: UNK; ??-???-2020 00:00
     Dates: start: 20200521
  71. CLOZARIL [Suspect]
     Active Substance: CLOZAPINE
     Dosage: 6000 MG, QD, (ADDITIONAL INFORMATION ON DRUG (FREE TEXT): CLOZARIL ADDITIONAL INFO: OFF LABEL USE; C
     Route: 048
     Dates: start: 20201223, end: 20201223
  72. CLOZARIL [Suspect]
     Active Substance: CLOZAPINE
     Dosage: 245 MILLIGRAM, ONCE A DAY
     Dates: start: 20191209, end: 20191223
  73. CLOZARIL [Suspect]
     Active Substance: CLOZAPINE
     Dosage: 6000 MILLIGRAM
     Route: 048
     Dates: start: 20201207
  74. CLOZARIL [Suspect]
     Active Substance: CLOZAPINE
     Dosage: 300 MILLIGRAM, PM
  75. CLOZARIL [Suspect]
     Active Substance: CLOZAPINE
     Dosage: UNK, 23-DEC-2019
  76. CLOZARIL [Suspect]
     Active Substance: CLOZAPINE
     Dosage: 6000 MG;
     Dates: start: 20191209, end: 20191223
  77. CLOZARIL [Suspect]
     Active Substance: CLOZAPINE
     Dosage: 275 MILLIGRAM, QD; ??-???-2020 00:00 / 275 MILLIGRAM, QD, STOP DATE 2020
     Route: 048
     Dates: start: 20200521
  78. CLOZARIL [Suspect]
     Active Substance: CLOZAPINE
     Dosage: 245 MG, QD, (ADDITIONAL INFORMATION ON DRUG (FREE TEXT): CLOZARIL ADDITIONAL INFO: OFF LABEL USE; CU
     Route: 048
     Dates: start: 20191209, end: 20191223
  79. CLOZARIL [Suspect]
     Active Substance: CLOZAPINE
     Dosage: 100 MILLIGRAM, ONCE A DAY AM
     Route: 048
     Dates: start: 20191223, end: 20191223
  80. CLOZARIL [Suspect]
     Active Substance: CLOZAPINE
     Dosage: 6000 MILLIGRAM
     Route: 048
     Dates: start: 20201223, end: 20201223
  81. CLOZARIL [Suspect]
     Active Substance: CLOZAPINE
     Dosage: 800 MG, QD
     Dates: start: 20201207
  82. CLOZARIL [Suspect]
     Active Substance: CLOZAPINE
     Dosage: 400 MILLIGRAM, QD (200 MILLIGRAM, BID)
  83. CLOZARIL [Suspect]
     Active Substance: CLOZAPINE
     Dosage: 50 MG, QD;
     Dates: start: 20191207, end: 20191223
  84. CLOZARIL [Suspect]
     Active Substance: CLOZAPINE
     Dosage: 200 MILLIGRAM, TWO TIMES A DAY
     Route: 048
  85. CLOZARIL [Suspect]
     Active Substance: CLOZAPINE
     Dosage: 50 MILLIGRAM MIDDAY
  86. CLOZARIL [Suspect]
     Active Substance: CLOZAPINE
     Dosage: UNK, 23-DEC-2019; 23-DEC-2019 00:00
     Route: 048
  87. CLOZARIL [Suspect]
     Active Substance: CLOZAPINE
     Dosage: 400 MILLIGRAM, BID
     Route: 048
  88. CLOZARIL [Suspect]
     Active Substance: CLOZAPINE
     Dosage: 600 MG, QD, (ADDITIONAL INFORMATION ON DRUG (FREE TEXT): CLOZARIL ADDITIONAL INFO: OFF LABEL USE; CU
     Route: 048
     Dates: start: 2011
  89. CLOZARIL [Suspect]
     Active Substance: CLOZAPINE
     Dosage: 100 MILLIGRAM, ONCE A DAY AM, TABLET (UNCOATED, ORAL)
     Route: 048
  90. CLOZARIL [Suspect]
     Active Substance: CLOZAPINE
     Dosage: UNK UNK, UNKNOWN
     Route: 048
     Dates: start: 20200823, end: 20200823
  91. CLOZARIL [Suspect]
     Active Substance: CLOZAPINE
     Dosage: 50 MG, QD (MIDDAY)
  92. CLOZARIL [Suspect]
     Active Substance: CLOZAPINE
     Dosage: 6000 MG
     Route: 048
     Dates: start: 20100823, end: 20100823
  93. CLOZARIL [Suspect]
     Active Substance: CLOZAPINE
     Dosage: 300 MILLIGRAM, ONCE A DAY PM, TABLET (UNCOATED, ORAL)
     Route: 048
     Dates: start: 20100823
  94. CLOZARIL [Suspect]
     Active Substance: CLOZAPINE
     Dosage: 400 MG, UNK UNK, UNKNOWN
     Route: 048
     Dates: start: 20100823
  95. CLOZARIL [Suspect]
     Active Substance: CLOZAPINE
     Dosage: 50 MILLIGRAM, QD (50 MG, DAILY)
     Route: 048
     Dates: start: 20191209, end: 20191223
  96. CLOZARIL [Suspect]
     Active Substance: CLOZAPINE
     Dosage: UNK, (ADDITIONAL INFORMATION ON DRUG (FREE TEXT): CLOZARIL ADDITIONAL INFO: OFF LABEL USE; CUMULATIV
     Route: 048
     Dates: start: 20191223, end: 20191223
  97. CLOZARIL [Suspect]
     Active Substance: CLOZAPINE
     Dosage: 6000 MILLIGRAM
     Route: 048
     Dates: start: 20200521
  98. CLOZARIL [Suspect]
     Active Substance: CLOZAPINE
     Dosage: 50 MILLIGRAM, QD (ADDITIONAL INFORMATION ON DRUG (FREE TEXT): CLOZARIL ADDITIONAL INFO: OFF LABEL US
     Route: 048
     Dates: start: 20200521
  99. CLOZARIL [Suspect]
     Active Substance: CLOZAPINE
     Dosage: 300 MG, QD, (PM)/300 MG, QD(1X/DAY (PM))
  100. CLOZARIL [Suspect]
     Active Substance: CLOZAPINE
     Dosage: 100 MG, QD, (ADDITIONAL INFORMATION ON DRUG (FREE TEXT): CLOZARIL ADDITIONAL INFO: OFF LABEL USE; CU
     Route: 048
     Dates: start: 2011
  101. CLOZARIL [Suspect]
     Active Substance: CLOZAPINE
     Dosage: 300 MG, QD, (ADDITIONAL INFORMATION ON DRUG (FREE TEXT): CLOZARIL ADDITIONAL INFO: OFF LABEL USE; CU
     Route: 065
     Dates: start: 20100823
  102. CLOZARIL [Suspect]
     Active Substance: CLOZAPINE
     Dosage: 245 MILLIGRAM, QD, 1 ONCE A DAY (AM)/2011
     Route: 065
     Dates: start: 20191207
  103. CLOZARIL [Suspect]
     Active Substance: CLOZAPINE
     Dosage: 100 MG, QD; 100 MILLIGRAM, ONCE A DAY AM
     Route: 048
  104. CLOZARIL [Suspect]
     Active Substance: CLOZAPINE
     Dosage: 245 MG, UNKNOWN
     Dates: start: 20191223, end: 20191223
  105. CLOZARIL [Suspect]
     Active Substance: CLOZAPINE
     Dosage: 400 MG, QD
     Dates: start: 20100823, end: 20100823
  106. CLOZARIL [Suspect]
     Active Substance: CLOZAPINE
     Dosage: 245 MG, QD
     Dates: start: 20191209, end: 20191223
  107. CLOZARIL [Suspect]
     Active Substance: CLOZAPINE
     Dosage: 6000 MILLIGRAM
     Route: 048
     Dates: start: 20100823, end: 20100823
  108. CLOZARIL [Suspect]
     Active Substance: CLOZAPINE
     Dosage: 1 DOSAGE FORM, EACH MORNING TABLET (UNCOATED, ORAL)
     Route: 048
     Dates: start: 2011
  109. CLOZARIL [Suspect]
     Active Substance: CLOZAPINE
     Dosage: 6000 MG
     Route: 048
     Dates: start: 20201207
  110. CLOZARIL [Suspect]
     Active Substance: CLOZAPINE
     Dosage: 1 DOSAGE FORM, QD
     Route: 048
     Dates: start: 2011
  111. CLOZARIL [Suspect]
     Active Substance: CLOZAPINE
     Dosage: 245 MG, QD (AM)
     Dates: start: 2011
  112. CLOZARIL [Suspect]
     Active Substance: CLOZAPINE
     Dosage: 800 MILLIGRAM, QD
     Route: 048
     Dates: start: 20201207
  113. CLOZARIL [Suspect]
     Active Substance: CLOZAPINE
     Dosage: 200 MG, BID
  114. CLOZARIL [Suspect]
     Active Substance: CLOZAPINE
     Dosage: 245 MILLIGRAM, QD, 1 ONCE A DAY (AM)/2011
  115. CLOZARIL [Suspect]
     Active Substance: CLOZAPINE
     Dosage: 100 MG, QD
     Dates: start: 20200521
  116. CLOZARIL [Suspect]
     Active Substance: CLOZAPINE
     Dosage: 6000 MG, (ADDITIONAL INFORMATION ON DRUG (FREE TEXT): CLOZARIL ADDITIONAL INFO: OFF LABEL USE; CUMUL
     Route: 048
     Dates: start: 20200207
  117. CLOZARIL [Suspect]
     Active Substance: CLOZAPINE
     Dosage: 245 MILLIGRAM, TABLET (UNCOATED, ORAL)
     Route: 048
     Dates: start: 20100823
  118. CLOZARIL [Suspect]
     Active Substance: CLOZAPINE
     Dosage: 245 MILLIGRAM
     Dates: start: 20100823
  119. CLOZARIL [Suspect]
     Active Substance: CLOZAPINE
     Dosage: 300 MG, QD (PM)
  120. CLOZARIL [Suspect]
     Active Substance: CLOZAPINE
     Dosage: 600 MILLIGRAM, QD
     Route: 048
     Dates: start: 20191207, end: 20191223
  121. CLOZARIL [Suspect]
     Active Substance: CLOZAPINE
     Dosage: OFF LABEL USE, TABLET (UNCOATED, ORAL)
     Route: 048
     Dates: start: 20200521
  122. CLOZARIL [Suspect]
     Active Substance: CLOZAPINE
     Dosage: 400 MG, QD
     Route: 048
     Dates: start: 20201207
  123. CLOZARIL [Suspect]
     Active Substance: CLOZAPINE
     Dosage: 245 MILLIGRAM, QD, (ADDITIONAL INFORMATION ON DRUG (FREE TEXT): CLOZARIL ADDITIONAL INFO: OFF LABEL
     Route: 048
     Dates: start: 20200521
  124. CLOZARIL [Suspect]
     Active Substance: CLOZAPINE
     Dosage: 245 MG, QD, (ADDITIONAL INFORMATION ON DRUG (FREE TEXT): CLOZARIL ADDITIONAL INFO: OFF LABEL USE; CU
     Route: 048
     Dates: start: 20191207
  125. CLOZARIL [Suspect]
     Active Substance: CLOZAPINE
     Dosage: 6000 MG, QD, (ADDITIONAL INFORMATION ON DRUG (FREE TEXT): CLOZARIL ADDITIONAL INFO: OFF LABEL USE; C
     Route: 048
     Dates: start: 20100823
  126. CLOZARIL [Suspect]
     Active Substance: CLOZAPINE
     Dosage: 200 MILLIGRAM, ONCE A DAY, OFF LABEL USE
     Route: 048
     Dates: start: 20100823
  127. CLOZARIL [Suspect]
     Active Substance: CLOZAPINE
     Dosage: 1 DOSAGE FORM, EACH MORNING
     Route: 048
  128. CLOZARIL [Suspect]
     Active Substance: CLOZAPINE
     Dosage: 400 MG, UNKNOWN
     Route: 048
     Dates: start: 20191223, end: 20191223
  129. CLOZARIL [Suspect]
     Active Substance: CLOZAPINE
     Dosage: 800 MG, QD
     Dates: start: 20220719
  130. CLOZARIL [Suspect]
     Active Substance: CLOZAPINE
     Dosage: 75 MG, QD
     Dates: start: 20200521
  131. CLOZARIL [Suspect]
     Active Substance: CLOZAPINE
     Dosage: 245 MG, QD, (AM)
     Dates: start: 2011
  132. CLOZARIL [Suspect]
     Active Substance: CLOZAPINE
     Dosage: 275 MG, QD
     Route: 048
     Dates: start: 20191207
  133. CLOZARIL [Suspect]
     Active Substance: CLOZAPINE
     Dosage: 50 MG, QD
     Route: 048
     Dates: start: 20191209, end: 20191223
  134. CLOZARIL [Suspect]
     Active Substance: CLOZAPINE
     Dosage: 800 MG, DAILY
     Route: 048
     Dates: start: 20201207
  135. CLOZARIL [Suspect]
     Active Substance: CLOZAPINE
     Dosage: 400 MG, QD
     Dates: start: 20201207
  136. CLOZARIL [Suspect]
     Active Substance: CLOZAPINE
     Dosage: 245 MILLIGRAM, QD
     Route: 048
     Dates: start: 20190823, end: 20190823
  137. CLOZARIL [Suspect]
     Active Substance: CLOZAPINE
     Dosage: 100 MG, QD, (ADDITIONAL INFORMATION ON DRUG (FREE TEXT): CLOZARIL ADDITIONAL INFO: OFF LABEL USE; CU
     Route: 048
     Dates: start: 20191223, end: 20191223
  138. CLOZARIL [Suspect]
     Active Substance: CLOZAPINE
     Dosage: 50 MILLIGRAM, QD (50 MILLIGRAM MIDDAY)
  139. CLOZARIL [Suspect]
     Active Substance: CLOZAPINE
     Dosage: 6000 MILLIGRAM/ START DATE:23-AUG-2010; 23-AUG-2010 00:00
  140. CLOZARIL [Suspect]
     Active Substance: CLOZAPINE
     Dosage: 300 MG, DAILY (PM)/300 MILLIGRAM, ONCE A DAY PM
     Route: 048
     Dates: start: 20100823
  141. CLOZARIL [Suspect]
     Active Substance: CLOZAPINE
     Dosage: 245 MG, UNKNOWN, TABLET (UNCOATED, ORAL)
     Route: 048
     Dates: start: 20191223, end: 20191223
  142. CLOZARIL [Suspect]
     Active Substance: CLOZAPINE
     Dosage: 245 MG;
     Dates: start: 20191207
  143. CLOZARIL [Suspect]
     Active Substance: CLOZAPINE
     Dosage: 275 MILLIGRAM, QD, (ADDITIONAL INFORMATION ON DRUG (FREE TEXT): CLOZARIL ADDITIONAL INFO: OFF LABEL
     Route: 048
     Dates: start: 20200521
  144. CLOZARIL [Suspect]
     Active Substance: CLOZAPINE
     Dosage: 245 MILLIGRAM, QD, 1 ONCE A DAY (AM)
  145. CLOZARIL [Suspect]
     Active Substance: CLOZAPINE
     Dosage: 50 MG, QD, MIDDAY;
     Dates: start: 20100823, end: 20100823
  146. CLOZARIL [Suspect]
     Active Substance: CLOZAPINE
     Dosage: 6000 MILLIGRAM
     Route: 048
     Dates: start: 20201209, end: 20201223
  147. CLOZARIL [Suspect]
     Active Substance: CLOZAPINE
     Dosage: 400 MG
     Route: 048
     Dates: start: 20200823
  148. CLOZARIL [Suspect]
     Active Substance: CLOZAPINE
     Dosage: 200 MILLIGRAM, BID, (ADDITIONAL INFORMATION ON DRUG (FREE TEXT): CLOZARIL ADDITIONAL INFO: OFF LABEL
     Route: 048
     Dates: start: 20191209, end: 20191223
  149. CLOZARIL [Suspect]
     Active Substance: CLOZAPINE
     Dosage: 245 MG, QD;
     Dates: start: 20191209, end: 20191223
  150. CLOZARIL [Suspect]
     Active Substance: CLOZAPINE
     Dosage: 275 MG, QD
     Route: 048
     Dates: start: 20200521, end: 20200521
  151. CLOZARIL [Suspect]
     Active Substance: CLOZAPINE
     Dosage: 400 MG, QD
     Dates: start: 20230823
  152. CLOZARIL [Suspect]
     Active Substance: CLOZAPINE
     Dosage: 200 MILLIGRAM, TWO TIMES A DAY
     Route: 048
     Dates: start: 20191209
  153. CLOZARIL [Suspect]
     Active Substance: CLOZAPINE
     Dosage: 245 MG, UNKNOWN
     Route: 048
     Dates: start: 20200521
  154. CLOZARIL [Suspect]
     Active Substance: CLOZAPINE
     Dosage: UNK
     Dates: start: 20100823
  155. CLOZARIL [Suspect]
     Active Substance: CLOZAPINE
     Dosage: UNK, UNKNOWN
     Route: 048
     Dates: start: 20191223, end: 20191223
  156. CLOZARIL [Suspect]
     Active Substance: CLOZAPINE
     Dosage: 200 MG, BID
     Route: 048
     Dates: start: 20191209, end: 20191223
  157. CLOZARIL [Suspect]
     Active Substance: CLOZAPINE
     Dosage: 200 MILLIGRAM, BID (200 MILLIGRAM, TWO TIMES A DAY) / 200 MILLIGRAM BID
     Route: 048
     Dates: start: 20191223
  158. CLOZARIL [Suspect]
     Active Substance: CLOZAPINE
     Dosage: UNK
     Route: 048
     Dates: start: 20100823
  159. CLOZARIL [Suspect]
     Active Substance: CLOZAPINE
     Dosage: 50 MILLIGRAM, ONCE A DAY (50 MILLIGRAM,MIDDAY), TABLET (UNCOATED, ORAL)
     Route: 048
     Dates: start: 20190809, end: 20190823
  160. CLOZARIL [Suspect]
     Active Substance: CLOZAPINE
     Dosage: STOP DATE: 2021
     Dates: start: 20200521
  161. CLOZARIL [Suspect]
     Active Substance: CLOZAPINE
     Dosage: UNK
     Route: 048
     Dates: start: 20100823
  162. CLOZARIL [Suspect]
     Active Substance: CLOZAPINE
     Dosage: 5 MILLIGRAM
     Route: 048
  163. CLOZARIL [Suspect]
     Active Substance: CLOZAPINE
     Dosage: 245 MG, UNKNOWN
     Dates: start: 20200521, end: 20201223
  164. CLOZARIL [Suspect]
     Active Substance: CLOZAPINE
     Dosage: UNK UNK, QD (ADDITIONAL INFORMATION ON DRUG (FREE TEXT): CLOZARIL ADDITIONAL INFO: OFF LABEL USE; CU
     Route: 048
     Dates: start: 20190823, end: 20190823
  165. CLOZARIL [Suspect]
     Active Substance: CLOZAPINE
     Dosage: 600 MILLIGRAM, QD
     Dates: start: 20191207, end: 20191223
  166. CLOZARIL [Suspect]
     Active Substance: CLOZAPINE
     Dosage: 600 MILLIGRAM, QD
     Route: 048
     Dates: start: 20200521, end: 2021
  167. CLOZARIL [Suspect]
     Active Substance: CLOZAPINE
     Dosage: UNK
     Dates: start: 20220719
  168. CLOZARIL [Suspect]
     Active Substance: CLOZAPINE
     Dosage: UNKNOWN,UNKNOWN
     Dates: start: 20150930, end: 20151021
  169. CLOZARIL [Suspect]
     Active Substance: CLOZAPINE
     Dosage: 245 MG, QD
     Dates: start: 20200521
  170. CLOZARIL [Suspect]
     Active Substance: CLOZAPINE
     Dosage: 300 MG, QD (PM;
     Dates: start: 20100823, end: 20200823
  171. CLOZARIL [Suspect]
     Active Substance: CLOZAPINE
     Dosage: 200 MG, BID
     Dates: start: 20191209, end: 20191223
  172. CLOZARIL [Suspect]
     Active Substance: CLOZAPINE
     Dosage: UNK
     Dates: start: 20201207
  173. CLOZARIL [Suspect]
     Active Substance: CLOZAPINE
     Dosage: 400 MG, QD
     Dates: start: 20191223
  174. CLOZARIL [Suspect]
     Active Substance: CLOZAPINE
     Dosage: 6000 MILLIGRAM/ START DATE:23-AUG-2010; 23-AUG-2010 00:00
     Route: 048
  175. CLOZARIL [Suspect]
     Active Substance: CLOZAPINE
     Dosage: 6000 MILLIGRAM
     Route: 048
     Dates: start: 20200521
  176. CLOZARIL [Suspect]
     Active Substance: CLOZAPINE
     Dosage: 100 MG, QD (AM);
     Dates: start: 20210521
  177. CLOZARIL [Suspect]
     Active Substance: CLOZAPINE
     Dosage: 6000 MG
     Route: 048
     Dates: start: 20191223, end: 20191223
  178. CLOZARIL [Suspect]
     Active Substance: CLOZAPINE
     Dosage: UNK
     Dates: start: 20191209, end: 20191223
  179. CLOZARIL [Suspect]
     Active Substance: CLOZAPINE
     Dosage: 6000 MILLIGRAM
     Route: 048
     Dates: start: 20200207
  180. CLOZARIL [Suspect]
     Active Substance: CLOZAPINE
     Dosage: 100 MILLIGRAM, QD, AM
     Route: 065
     Dates: start: 2011
  181. CLOZARIL [Suspect]
     Active Substance: CLOZAPINE
     Dosage: 400 MG, QD, (ADDITIONAL INFORMATION ON DRUG (FREE TEXT): CLOZARIL ADDITIONAL INFO: OFF LABEL USE; CU
     Route: 048
     Dates: start: 2011
  182. CLOZARIL [Suspect]
     Active Substance: CLOZAPINE
     Dosage: 50 MG, QD, (ADDITIONAL INFORMATION ON DRUG (FREE TEXT): CLOZARIL ADDITIONAL INFO: OFF LABEL USE; CUM
     Route: 048
     Dates: start: 20190809, end: 20190823
  183. CLOZARIL [Suspect]
     Active Substance: CLOZAPINE
     Dosage: 6000 MG
     Route: 048
     Dates: start: 20191209, end: 20191223
  184. CLOZARIL [Suspect]
     Active Substance: CLOZAPINE
     Dosage: 6000 MILLIGRAM
     Dates: start: 20191209, end: 20191223
  185. CLOZARIL [Suspect]
     Active Substance: CLOZAPINE
     Dosage: 6000 MG, QD, (ADDITIONAL INFORMATION ON DRUG (FREE TEXT): CLOZARIL ADDITIONAL INFO: OFF LABEL USE; C
     Route: 048
     Dates: start: 20191207, end: 20191223
  186. CLOZARIL [Suspect]
     Active Substance: CLOZAPINE
     Dosage: 600 MILLIGRAM, QD, (ADDITIONAL INFORMATION ON DRUG (FREE TEXT): CLOZARIL ADDITIONAL INFO: OFF LABEL
     Route: 048
     Dates: start: 20200521, end: 2021
  187. CLOZARIL [Suspect]
     Active Substance: CLOZAPINE
     Dosage: 6000 MILLIGRAM
     Route: 048
     Dates: start: 20200521
  188. CLOZARIL [Suspect]
     Active Substance: CLOZAPINE
     Dosage: UNK
     Route: 048
     Dates: start: 20200521, end: 2021
  189. CLOZARIL [Suspect]
     Active Substance: CLOZAPINE
     Dosage: UNK
     Route: 048
     Dates: start: 20100823, end: 20100823
  190. CLOZARIL [Suspect]
     Active Substance: CLOZAPINE
     Dosage: 400 MG, QD (DOSE TEXT: 400 MG, QD;CUMULATIVE DOSE TO FIRST REACTION: 758416.7 MG)
     Route: 048
     Dates: start: 20100823
  191. CLOZARIL [Suspect]
     Active Substance: CLOZAPINE
     Dosage: 50 MG, QD (DOSE TEXT: 50 MG, QD; CUMULATIVE DOSE TO FIRST REACTION: 74950.0 MG )
     Route: 048
     Dates: start: 20191209, end: 20191223
  192. CLOZARIL [Suspect]
     Active Substance: CLOZAPINE
     Dosage: 800 MG, QD  (800 MG, QD; CUMULATIVE DOSE TO FIRST REACTION: 1490400.0 MG )
     Route: 048
     Dates: start: 20201207
  193. CLOZARIL [Suspect]
     Active Substance: CLOZAPINE
     Dosage: UNK
     Route: 048
     Dates: start: 20200521, end: 2020
  194. CLOZARIL [Suspect]
     Active Substance: CLOZAPINE
     Dosage: 6000 MG
     Route: 065
     Dates: start: 20100823, end: 20100823
  195. CLOZARIL [Suspect]
     Active Substance: CLOZAPINE
     Dosage: UNK
     Route: 048
     Dates: start: 20200521
  196. CLOZARIL [Suspect]
     Active Substance: CLOZAPINE
     Dosage: 100 MG
     Route: 065
  197. CLOZARIL [Suspect]
     Active Substance: CLOZAPINE
     Dosage: 50 MG, QD, MIDDAY
     Route: 065
  198. CLOZARIL [Suspect]
     Active Substance: CLOZAPINE
     Dosage: 245 MG
     Route: 048
     Dates: start: 20200521
  199. CLOZARIL [Suspect]
     Active Substance: CLOZAPINE
     Dosage: UNK
     Route: 048
     Dates: start: 20100823
  200. CLOZARIL [Suspect]
     Active Substance: CLOZAPINE
     Dosage: 1 DOSAGE FORM, QD
     Route: 048
  201. CLOZARIL [Suspect]
     Active Substance: CLOZAPINE
     Dosage: 6000 MG
     Route: 048
     Dates: start: 20200521
  202. CLOZARIL [Suspect]
     Active Substance: CLOZAPINE
     Dosage: UNK
     Route: 065
     Dates: start: 20201207
  203. CLOZARIL [Suspect]
     Active Substance: CLOZAPINE
     Dosage: 245 MG
     Route: 048
     Dates: start: 20100823, end: 20200823
  204. CLOZARIL [Suspect]
     Active Substance: CLOZAPINE
     Dosage: 275 MG, QD (DOSE TEXT: 275 MG, QD; CUMULATIVE DOSE TO FIRST REACTION: 457313.53)
     Route: 048
     Dates: start: 20200521
  205. CLOZARIL [Suspect]
     Active Substance: CLOZAPINE
     Dosage: 6000 MG
     Route: 065
  206. CLOZARIL [Suspect]
     Active Substance: CLOZAPINE
     Dosage: 100 MG, QD  (DOSE TEXT: 100 MG, QD; CUMULATIVE DOSE TO FIRST REACTION: 166295.83 MG)
     Route: 065
     Dates: start: 20200521
  207. CLOZARIL [Suspect]
     Active Substance: CLOZAPINE
     Dosage: UNK
     Route: 048
     Dates: end: 20220719
  208. CLOZARIL [Suspect]
     Active Substance: CLOZAPINE
     Dosage: 275 MG, QD
  209. CLOZARIL [Suspect]
     Active Substance: CLOZAPINE
     Dosage: UNK
     Route: 065
     Dates: start: 20191209, end: 20191223
  210. CLOZARIL [Suspect]
     Active Substance: CLOZAPINE
     Dosage: 400 MG, QD
     Route: 048
     Dates: end: 20191223
  211. CLOZARIL [Suspect]
     Active Substance: CLOZAPINE
     Dosage: UNK
     Route: 048
     Dates: start: 20191223
  212. CLOZARIL [Suspect]
     Active Substance: CLOZAPINE
     Dosage: 400 MG, QD (400 MG, QD (200 MG, BID)
     Route: 048
  213. CLOZARIL [Suspect]
     Active Substance: CLOZAPINE
     Dosage: 275 MG, QD (DOSE TEXT: 275 MG, QD; CUMULATIVE DOSE TO FIRST REACTION: 457313.53 MG )
     Route: 048
     Dates: start: 20200521, end: 2020
  214. CLOZARIL [Suspect]
     Active Substance: CLOZAPINE
     Dosage: 400 MG, QD (DOSE TEXT: 200 MG, BID; CUMULATIVE DOSE TO FIRST REACTION: 599600.0 MG)
     Route: 048
     Dates: start: 20191209, end: 20191223
  215. CLOZARIL [Suspect]
     Active Substance: CLOZAPINE
     Dosage: 245 MG, QD  (DOSE TEXT: 245 MG, QD; CUMULATIVE DOSE TO FIRST REACTION: 367255.0 MG )
     Route: 048
     Dates: start: 20191209, end: 20191223
  216. CLOZARIL [Suspect]
     Active Substance: CLOZAPINE
     Dosage: 245 MG, QD (AM)
     Route: 065
     Dates: start: 2011
  217. CLOZARIL [Suspect]
     Active Substance: CLOZAPINE
     Dosage: 400 MG, QD (DOSE TEXT: 200 MG, BID ; CUMULATIVE DOSE TO FIRST REACTION: 599600.0 MG)
     Route: 048
     Dates: start: 20191209
  218. CLOZARIL [Suspect]
     Active Substance: CLOZAPINE
     Dosage: 1 DF, QD 1 DOSAGE FORM, QD (PM)
     Route: 065
     Dates: start: 2011
  219. CLOZARIL [Suspect]
     Active Substance: CLOZAPINE
     Dosage: UNK
     Route: 065
     Dates: start: 20191207, end: 20191223
  220. CLOZARIL [Suspect]
     Active Substance: CLOZAPINE
     Dosage: 400 MG, QD   (400 MG, QD; CUMULATIVE DOSE TO FIRST REACTION: 745200.0 MG)
     Route: 048
     Dates: start: 20201207
  221. CLOZARIL [Suspect]
     Active Substance: CLOZAPINE
     Dosage: 300 MG, QD (DOSE TEXT: 300 MG, QD (PM); CUMULATIVE DOSE TO FIRST REACTION: 568812.5 MG)
     Route: 048
     Dates: start: 20100823
  222. CLOZARIL [Suspect]
     Active Substance: CLOZAPINE
     Dosage: 6000 MG
     Route: 048
     Dates: start: 20191209, end: 20191223
  223. CLOZARIL [Suspect]
     Active Substance: CLOZAPINE
     Dosage: 400 MG, QD   (DOSE TEXT: 400 MG, QD; CUMULATIVE DOSE TO FIRST REACTION: 605200.0 MG)
     Route: 048
     Dates: start: 20191223, end: 20191223
  224. HALDOL [Suspect]
     Active Substance: HALOPERIDOL
     Dosage: 20 MG, QD (10 MG, BID)
     Route: 048
  225. HALDOL [Suspect]
     Active Substance: HALOPERIDOL
     Dosage: 10 MG, QD
  226. HALDOL [Suspect]
     Active Substance: HALOPERIDOL
     Dosage: 40 MG, QD
  227. HALDOL [Suspect]
     Active Substance: HALOPERIDOL
     Dosage: 5 MG, QD
     Route: 048
  228. RISPERDAL [Suspect]
     Active Substance: RISPERIDONE
     Dosage: 1 MILLIGRAM, ONCE A DAY
     Route: 065
  229. RISPERDAL [Suspect]
     Active Substance: RISPERIDONE
     Dosage: 1 G, QD
     Route: 048
  230. RISPERDAL [Suspect]
     Active Substance: RISPERIDONE
     Dosage: 2 MILLIGRAM, TWO TIMES A DAY
     Route: 065
  231. RISPERDAL [Suspect]
     Active Substance: RISPERIDONE
     Dosage: 4 MILLIGRAM, BID
     Route: 048
  232. RISPERDAL [Suspect]
     Active Substance: RISPERIDONE
     Dosage: 6 MG, QD
     Route: 048
  233. RISPERDAL [Suspect]
     Active Substance: RISPERIDONE
     Dosage: 3 MG, BID
     Route: 048
  234. RISPERDAL [Suspect]
     Active Substance: RISPERIDONE
     Dosage: 2 MILLIGRAM
     Route: 048
  235. RISPERDAL [Suspect]
     Active Substance: RISPERIDONE
     Dosage: UNK, QD
  236. RISPERDAL [Suspect]
     Active Substance: RISPERIDONE
     Dosage: 12 MG
  237. RISPERIDONE [Suspect]
     Active Substance: RISPERIDONE
     Dosage: 4 MG, QD, (ADDITIONAL INFORMATION ON DRUG (FREE TEXT): CLOZARIL ADDITIONAL INFO)
     Route: 065
  238. RISPERIDONE [Suspect]
     Active Substance: RISPERIDONE
     Dosage: 3 MG, BID
     Route: 065
  239. RISPERIDONE [Suspect]
     Active Substance: RISPERIDONE
     Dosage: 1 MG, QD
     Route: 065
  240. RISPERIDONE [Suspect]
     Active Substance: RISPERIDONE
     Dosage: 1 GRAM, ONCE A DAY
     Route: 048
  241. RISPERIDONE [Suspect]
     Active Substance: RISPERIDONE
     Dosage: 3 MG, QD
     Route: 048
  242. RISPERIDONE [Suspect]
     Active Substance: RISPERIDONE
     Dosage: (2 MG, BID)
  243. RISPERIDONE [Suspect]
     Active Substance: RISPERIDONE
     Dosage: 6 MG, BID
     Route: 048
  244. TRASTUZUMAB [Suspect]
     Active Substance: TRASTUZUMAB
     Dosage: 1218 MILLIGRAM, QWK (206893.25 MG)??START DATE- 30-SEP-2015
     Route: 042
  245. TRASTUZUMAB [Suspect]
     Active Substance: TRASTUZUMAB
     Dosage: 609 MG, EVERY 3 WEEKS (CUMULATIVE DOSE FORM: 1799.20 MG)??START DATE- 30-SEP-2015
     Route: 042
  246. TRASTUZUMAB [Suspect]
     Active Substance: TRASTUZUMAB
     Dosage: 609 MG, 609 MILLIGRAM, Q3WK (34482.207 MG)
  247. TRASTUZUMAB [Suspect]
     Active Substance: TRASTUZUMAB
     Dosage: 840 MG, Q3W (CUMULATIVE DOSE: 2481.6667 MG
  248. TRASTUZUMAB [Suspect]
     Active Substance: TRASTUZUMAB
     Dosage: 1827 MILLIGRAM, QWK??START DATE 30-SEP-2015
  249. TRASTUZUMAB [Suspect]
     Active Substance: TRASTUZUMAB
     Dosage: 420 MILLIGRAM, Q3WK, (ADDITIONAL INFORMATION ON DRUG (FREE TEXT): CLOZARIL ADDITIONAL INFO)
     Route: 065
  250. TRASTUZUMAB [Suspect]
     Active Substance: TRASTUZUMAB
     Dosage: 1218 MILLIGRAM??START DATE- 30-NOV-2015
     Route: 065
  251. TRASTUZUMAB [Suspect]
     Active Substance: TRASTUZUMAB
     Dosage: 1827 MILLIGRAM??START DATE- 30-SEP-2015
     Route: 065
  252. ARIPIPRAZOLE [Suspect]
     Active Substance: ARIPIPRAZOLE
     Indication: Schizophrenia
     Dosage: UNKNOWN, TABLET
     Route: 048
  253. ARIPIPRAZOLE [Suspect]
     Active Substance: ARIPIPRAZOLE
     Route: 048
  254. ARIPIPRAZOLE [Suspect]
     Active Substance: ARIPIPRAZOLE
     Dosage: 5 MG, UNKNOWN, TABLET (UNCOATED, ORAL)
     Route: 048

REACTIONS (41)
  - Alopecia [Fatal]
  - Mucosal inflammation [Fatal]
  - Nausea [Fatal]
  - Neuropathy peripheral [Fatal]
  - Fatigue [Fatal]
  - Diarrhoea [Fatal]
  - Cellulitis [Fatal]
  - Dyspepsia [Fatal]
  - Rhinalgia [Fatal]
  - Off label use [Fatal]
  - Off label use [Fatal]
  - Off label use [Fatal]
  - Leukocytosis [Fatal]
  - Leukopenia [Fatal]
  - Platelet count decreased [Fatal]
  - Neoplasm progression [Fatal]
  - Disease progression [Fatal]
  - Lymphocyte count abnormal [Fatal]
  - Lymphocyte count decreased [Fatal]
  - Fatigue [Fatal]
  - Hallucination, auditory [Fatal]
  - Neutropenia [Fatal]
  - Delusion of grandeur [Fatal]
  - Neutrophil count increased [Fatal]
  - Fatigue [Fatal]
  - SARS-CoV-2 test positive [Fatal]
  - COVID-19 [Fatal]
  - Leukocytosis [Fatal]
  - Thrombocytopenia [Fatal]
  - Schizophrenia [Fatal]
  - Lymphocyte count abnormal [Fatal]
  - Neutrophil count decreased [Fatal]
  - Psychotic disorder [Fatal]
  - Hospitalisation [Fatal]
  - Extrapyramidal disorder [Fatal]
  - Extrapyramidal disorder [Fatal]
  - Affective disorder [Fatal]
  - Seizure [Fatal]
  - Overdose [Fatal]
  - Incorrect dose administered [Fatal]
  - Intentional product misuse [Fatal]

NARRATIVE: CASE EVENT DATE: 20151101
